FAERS Safety Report 25738115 (Version 2)
Quarter: 2025Q4

REPORT INFORMATION
  Report Type: Spontaneous
  Country: US (occurrence: US)
  Receive Date: 20250829
  Receipt Date: 20251208
  Transmission Date: 20260117
  Serious: Yes (Hospitalization, Other)
  Sender: ACCORD
  Company Number: US-Accord-501475

PATIENT
  Age: 75 Year
  Sex: Female
  Weight: 57.8 kg

DRUGS (4)
  1. CARBOPLATIN [Suspect]
     Active Substance: CARBOPLATIN
     Indication: Small cell lung cancer
     Dosage: 495 MILLIGRAM, Q3W, IV DRIP
     Route: 042
     Dates: start: 20250722, end: 20250722
  2. ETOPOSIDE [Suspect]
     Active Substance: ETOPOSIDE
     Indication: Small cell lung cancer
     Dosage: 167MG, ONCE DAILY, THREE DAYS EACH CYCLE, Q3W, IV DRIP
     Route: 042
     Dates: start: 20250722
  3. LEVOTHYROXINE [Concomitant]
     Active Substance: LEVOTHYROXINE
     Indication: Hypothyroidism
     Dosage: 88MG, QD
     Route: 048
     Dates: start: 1984
  4. OLODATEROL\TIOTROPIUM [Concomitant]
     Active Substance: OLODATEROL\TIOTROPIUM
     Indication: Dyspnoea
     Dosage: 2.5MG, INHALER, AS NEEDED (PRN)
     Dates: start: 202312

REACTIONS (1)
  - Pancytopenia [Recovered/Resolved]

NARRATIVE: CASE EVENT DATE: 20250805
